FAERS Safety Report 8409647-9 (Version None)
Quarter: 2012Q2

REPORT INFORMATION
  Report Type: 
  Country: None (occurrence: None)
  Receive Date: 20120529
  Receipt Date: 20120518
  Transmission Date: 20120825
  Serious: Yes (Hospitalization, Other)
  Sender: FDA-Public Use
  Company Number: AUR-APL-2012-02354

PATIENT
  Age: 65 Year
  Sex: Male

DRUGS (2)
  1. ZOLPIDEM [Suspect]
     Indication: INSOMNIA
     Dosage: (20 MG)
  2. PREDNISONE TAB [Concomitant]

REACTIONS (8)
  - WRONG DRUG ADMINISTERED [None]
  - STARING [None]
  - AMNESIA [None]
  - ABNORMAL BEHAVIOUR [None]
  - AUTOMATISM [None]
  - SOMNAMBULISM [None]
  - ACCIDENTAL EXPOSURE [None]
  - CIRCUMSTANCE OR INFORMATION CAPABLE OF LEADING TO MEDICATION ERROR [None]
